FAERS Safety Report 10314069 (Version 3)
Quarter: 2015Q1

REPORT INFORMATION
  Report Type: Spontaneous
  Country: JP (occurrence: JP)
  Receive Date: 20140718
  Receipt Date: 20150324
  Transmission Date: 20150720
  Serious: Yes (Death)
  Sender: FDA-Public Use
  Company Number: JP-TEVA-494324ISR

PATIENT
  Age: 72 Year
  Sex: Female
  Weight: 40 kg

DRUGS (8)
  1. E-FEN BUCCAL [Suspect]
     Active Substance: FENTANYL CITRATE
     Dosage: 100 MICROGRAM DAILY; DAILY DOSE 0-100 MICRIGRAM
     Route: 002
     Dates: start: 20140611, end: 20140626
  2. MAGLAX(MAGNESIUM OXIDE) [Concomitant]
     Indication: CONSTIPATION
     Dosage: 5940 MILLIGRAM DAILY; 330 MG X 6 TABLETS ADMINISTERED 3 TIMES
     Route: 048
     Dates: end: 20140626
  3. CELECOXIB. [Concomitant]
     Active Substance: CELECOXIB
     Dosage: 400 MILLIGRAM DAILY;
     Route: 048
     Dates: start: 20140617, end: 20140626
  4. HYSRON-H(MEDROXYPROGESTERONE ACETATE) [Concomitant]
     Indication: BREAST CANCER
     Dosage: 400 MILLIGRAM DAILY;
     Route: 048
     Dates: end: 20140626
  5. OXYCODONE HYDROCHLORIDE HYDRATE [Concomitant]
     Active Substance: OXYCODONE HYDROCHLORIDE
     Indication: BREAKTHROUGH PAIN
     Dosage: 5 MILLIGRAM DAILY;
     Route: 048
  6. CELECOXIB. [Concomitant]
     Active Substance: CELECOXIB
     Indication: CANCER PAIN
     Dosage: 200 MILLIGRAM DAILY;
     Route: 048
     Dates: start: 20140613, end: 20140616
  7. E-FEN BUCCAL [Suspect]
     Active Substance: FENTANYL CITRATE
     Indication: BREAKTHROUGH PAIN
     Dosage: 200 MICROGRAM DAILY;
     Route: 002
     Dates: start: 20140609, end: 20140609
  8. OXYCODONE HYDROCHLORIDE HYDRATE [Concomitant]
     Active Substance: OXYCODONE HYDROCHLORIDE
     Indication: CANCER PAIN
     Dosage: 20 MILLIGRAM DAILY;
     Route: 048

REACTIONS (2)
  - Breast cancer [Fatal]
  - Constipation [Recovered/Resolved]

NARRATIVE: CASE EVENT DATE: 20140609
